FAERS Safety Report 15251279 (Version 4)
Quarter: 2019Q3

REPORT INFORMATION
  Report Type: Report from Study
  Country: US (occurrence: US)
  Receive Date: 20180807
  Receipt Date: 20190930
  Transmission Date: 20191004
  Serious: Yes (Other)
  Sender: FDA-Public Use
  Company Number: US-PFIZER INC-2018312812

PATIENT
  Age: 6 Year
  Sex: Female

DRUGS (4)
  1. CYCLOPHOSPHAMIDE. [Concomitant]
     Active Substance: CYCLOPHOSPHAMIDE
     Indication: MEDULLOBLASTOMA
     Dosage: 1.5 GM/M2/DAY ON DAYS 1 AND 2 OF EACH CYCLE
  2. ETHYOL [Concomitant]
     Active Substance: AMIFOSTINE
     Indication: MEDULLOBLASTOMA
     Dosage: 600 MG/M2/DOSE FOR 2 DOSES GIVEN JUST PRIOR TO AND AT 3 HOURS FOLLOWING COMMENCEMENT OF CISPLATIN
  3. VINCRISTINE SULFATE. [Suspect]
     Active Substance: VINCRISTINE SULFATE
     Indication: MEDULLOBLASTOMA
     Dosage: 1 MG/M2, CYCLIC (DAYS 1 AND 8 OF EACH CYCLE)
     Route: 042
  4. CISPLATIN. [Suspect]
     Active Substance: CISPLATIN
     Indication: MEDULLOBLASTOMA
     Dosage: 75 MG/M2, CYCLIC (ON THE FIRST DAY OF EACH CYCLE)

REACTIONS (1)
  - Neurotoxicity [Recovering/Resolving]
